FAERS Safety Report 9269971 (Version 1)
Quarter: 2013Q2

REPORT INFORMATION
  Report Type: Spontaneous
  Country: US (occurrence: None)
  Receive Date: 20130503
  Receipt Date: 20130503
  Transmission Date: 20140414
  Serious: Yes (Death, Congenital Anomaly)
  Sender: FDA-Public Use
  Company Number: None

PATIENT
  Age: 23 Year
  Sex: Female
  Weight: 90.72 kg

DRUGS (1)
  1. TAZORAC [Suspect]
     Indication: ACNE
     Dosage: PEA SIZE, EVERYDAY, TOP
     Route: 061
     Dates: start: 20040216, end: 20120102

REACTIONS (2)
  - Pregnancy [None]
  - Maternal exposure before pregnancy [None]
